FAERS Safety Report 4837531-6 (Version None)
Quarter: 2005Q4

REPORT INFORMATION
  Report Type: 
  Country: None (occurrence: None)
  Receive Date: 20051128
  Receipt Date: 20051104
  Transmission Date: 20060501
  Serious: Yes (Hospitalization)
  Sender: FDA-Public Use
  Company Number: US-SANOFI-SYNTHELABO-F01200502324

PATIENT
  Age: 69 Year
  Sex: Male

DRUGS (11)
  1. OXALIPLATIN [Suspect]
     Route: 042
     Dates: start: 20050912, end: 20050912
  2. FLUOROURACIL [Suspect]
     Indication: COLON CANCER
     Dosage: 400 MG/M2 IV BOLUS AND 2400 MG/M2 IV CONTINUOUS INFUSION FOR 46 HOURS, Q2W
     Route: 042
     Dates: start: 20050912, end: 20050914
  3. LEUCOVORIN [Suspect]
     Indication: COLON CANCER
     Route: 042
     Dates: start: 20050912, end: 20050912
  4. BEVACIZUMAB [Suspect]
     Indication: COLON CANCER
     Route: 042
     Dates: start: 20050912, end: 20050912
  5. SEREVENT [Concomitant]
  6. ATROVENT [Concomitant]
  7. SINGULAIR [Concomitant]
  8. HYDRODIURIL [Concomitant]
  9. FERROUS SULFATE TAB [Concomitant]
  10. POTASSIUM [Concomitant]
  11. MULTI-VITAMIN [Concomitant]

REACTIONS (4)
  - CEREBRAL HAEMORRHAGE [None]
  - CEREBRAL INFARCTION [None]
  - VASCULAR OCCLUSION [None]
  - VENOUS THROMBOSIS [None]
